FAERS Safety Report 23027742 (Version 2)
Quarter: 2023Q4

REPORT INFORMATION
  Report Type: Spontaneous
  Country: CH (occurrence: None)
  Receive Date: 20231004
  Receipt Date: 20231122
  Transmission Date: 20240110
  Serious: Yes (Other)
  Sender: FDA-Public Use
  Company Number: 2023A221689

PATIENT
  Sex: Male

DRUGS (3)
  1. IMFINZI [Suspect]
     Active Substance: DURVALUMAB
     Indication: Bile duct cancer
     Dosage: 8 CYCLES OF IMFINZI GEM/CIS
  2. GEM [Concomitant]
  3. CIS [Concomitant]

REACTIONS (2)
  - Malignant neoplasm progression [Unknown]
  - Type 1 diabetes mellitus [Unknown]
